FAERS Safety Report 26074931 (Version 1)
Quarter: 2025Q4

REPORT INFORMATION
  Report Type: Spontaneous
  Country: EU (occurrence: EU)
  Receive Date: 20251121
  Receipt Date: 20251121
  Transmission Date: 20260117
  Serious: Yes (Hospitalization)
  Sender: MYLAN
  Company Number: EU-MYLANLABS-2025M1098813

PATIENT
  Age: 15 Year
  Sex: Female

DRUGS (12)
  1. SERTRALINE [Suspect]
     Active Substance: SERTRALINE HYDROCHLORIDE
     Indication: Psychotic disorder
     Dosage: 200 MILLIGRAM
  2. SERTRALINE [Suspect]
     Active Substance: SERTRALINE HYDROCHLORIDE
     Dosage: 200 MILLIGRAM
     Route: 065
  3. SERTRALINE [Suspect]
     Active Substance: SERTRALINE HYDROCHLORIDE
     Dosage: 200 MILLIGRAM
     Route: 065
  4. SERTRALINE [Suspect]
     Active Substance: SERTRALINE HYDROCHLORIDE
     Dosage: 200 MILLIGRAM
  5. PALIPERIDONE [Suspect]
     Active Substance: PALIPERIDONE
     Indication: Psychotic disorder
     Dosage: 12 MILLIGRAM
  6. PALIPERIDONE [Suspect]
     Active Substance: PALIPERIDONE
     Dosage: 12 MILLIGRAM
     Route: 065
  7. PALIPERIDONE [Suspect]
     Active Substance: PALIPERIDONE
     Dosage: 12 MILLIGRAM
     Route: 065
  8. PALIPERIDONE [Suspect]
     Active Substance: PALIPERIDONE
     Dosage: 12 MILLIGRAM
  9. VALPROIC ACID [Concomitant]
     Active Substance: VALPROIC ACID
     Indication: Psychotic disorder
     Dosage: 600 MILLIGRAM
  10. VALPROIC ACID [Concomitant]
     Active Substance: VALPROIC ACID
     Dosage: 600 MILLIGRAM
     Route: 065
  11. VALPROIC ACID [Concomitant]
     Active Substance: VALPROIC ACID
     Dosage: 600 MILLIGRAM
     Route: 065
  12. VALPROIC ACID [Concomitant]
     Active Substance: VALPROIC ACID
     Dosage: 600 MILLIGRAM

REACTIONS (1)
  - Drug ineffective [Unknown]
